FAERS Safety Report 9540196 (Version 1)
Quarter: 2013Q3

REPORT INFORMATION
  Report Type: Spontaneous
  Country: US (occurrence: US)
  Receive Date: 20130920
  Receipt Date: 20130920
  Transmission Date: 20140515
  Serious: Yes (Other)
  Sender: FDA-Public Use
  Company Number: US-BRISTOL-MYERS SQUIBB COMPANY-19391879

PATIENT
  Sex: Male

DRUGS (1)
  1. ELIQUIS [Suspect]

REACTIONS (3)
  - Myocardial infarction [Unknown]
  - Haemoptysis [Unknown]
  - Pneumonia [Unknown]
